FAERS Safety Report 21421733 (Version 2)
Quarter: 2022Q4

REPORT INFORMATION
  Report Type: Report from Study
  Country: IE (occurrence: IE)
  Receive Date: 20221007
  Receipt Date: 20221013
  Transmission Date: 20230113
  Serious: Yes (Other)
  Sender: FDA-Public Use
  Company Number: IE-NOVARTISPH-NVSC2022IE215115

PATIENT
  Sex: Female

DRUGS (1)
  1. KISQALI [Suspect]
     Active Substance: RIBOCICLIB
     Indication: Breast cancer metastatic
     Dosage: 600 MG
     Route: 048

REACTIONS (12)
  - Electrocardiogram QT interval abnormal [Unknown]
  - Poor quality sleep [Unknown]
  - Anxiety [Unknown]
  - Lethargy [Unknown]
  - Feeling cold [Unknown]
  - Nausea [Unknown]
  - Fatigue [Unknown]
  - Constipation [Unknown]
  - Rash [Unknown]
  - Dyspepsia [Unknown]
  - Dry skin [Unknown]
  - Decreased appetite [Unknown]
